FAERS Safety Report 7765773-9 (Version None)
Quarter: 2011Q3

REPORT INFORMATION
  Report Type: 
  Country: None (occurrence: None)
  Receive Date: 20110921
  Receipt Date: 20110916
  Transmission Date: 20111222
  Serious: Yes (Other)
  Sender: FDA-Public Use
  Company Number: US-CEPHALON-2011004783

PATIENT
  Age: 74 Year
  Sex: Male

DRUGS (10)
  1. LISINOPRIL [Concomitant]
  2. NEULASTA [Concomitant]
  3. LEVOTHYROXINE SODIUM [Concomitant]
  4. ASPIRIN [Concomitant]
  5. TERAZOSIN HCL [Concomitant]
  6. RITUXAN [Concomitant]
     Indication: NON-HODGKIN'S LYMPHOMA
  7. TREANDA [Suspect]
     Indication: NON-HODGKIN'S LYMPHOMA
     Route: 042
     Dates: start: 20110412, end: 20110413
  8. TREANDA [Suspect]
     Route: 042
     Dates: start: 20110614, end: 20110615
  9. AMIODARONE HCL [Concomitant]
  10. TREANDA [Suspect]
     Route: 042
     Dates: start: 20110510, end: 20110511

REACTIONS (1)
  - PANCYTOPENIA [None]
